FAERS Safety Report 5825253-4 (Version None)
Quarter: 2008Q3

REPORT INFORMATION
  Report Type: 
  Country: None (occurrence: None)
  Receive Date: 20080729
  Receipt Date: 20080721
  Transmission Date: 20090109
  Serious: Yes (Hospitalization)
  Sender: FDA-Public Use
  Company Number: US-ELI_LILLY_AND_COMPANY-US200807000472

PATIENT
  Sex: Female

DRUGS (3)
  1. ALIMTA [Suspect]
     Indication: NON-SMALL CELL LUNG CANCER
  2. VITAMIN B-12 [Concomitant]
     Route: 030
  3. FOLIC ACID [Concomitant]
     Dosage: UNK, DAILY (1/D)
     Route: 048

REACTIONS (4)
  - ANAEMIA MEGALOBLASTIC [None]
  - BLOOD FOLATE ABNORMAL [None]
  - CONFUSIONAL STATE [None]
  - VITAMIN B12 ABNORMAL [None]
